FAERS Safety Report 12637679 (Version 1)
Quarter: 2016Q3

REPORT INFORMATION
  Report Type: Spontaneous
  Country: US (occurrence: US)
  Receive Date: 20160809
  Receipt Date: 20160809
  Transmission Date: 20161109
  Serious: Yes (Hospitalization, Other)
  Sender: FDA-Public Use
  Company Number: US-ABBVIE-16P-163-1562359-00

PATIENT
  Age: 54 Year
  Sex: Female

DRUGS (12)
  1. CYTOXIN [Suspect]
     Active Substance: CYCLOPHOSPHAMIDE
     Indication: SEIZURE
     Route: 065
  2. LAMICTAL [Suspect]
     Active Substance: LAMOTRIGINE
     Route: 065
  3. PREDNISONE. [Suspect]
     Active Substance: PREDNISONE
     Indication: SEIZURE
     Route: 065
  4. IMURAN [Suspect]
     Active Substance: AZATHIOPRINE
     Indication: SEIZURE
     Route: 065
  5. DEPAKOTE [Suspect]
     Active Substance: DIVALPROEX SODIUM
     Indication: SEIZURE
     Route: 065
  6. PLAQUENIL [Suspect]
     Active Substance: HYDROXYCHLOROQUINE SULFATE
     Indication: SEIZURE
     Route: 065
  7. CLINORIL [Suspect]
     Active Substance: SULINDAC
     Indication: SEIZURE
     Route: 065
  8. DILANTIN [Suspect]
     Active Substance: PHENYTOIN
     Indication: SEIZURE
     Route: 065
  9. KEPPRA [Suspect]
     Active Substance: LEVETIRACETAM
     Indication: SEIZURE
     Route: 065
  10. NEURONTIN [Suspect]
     Active Substance: GABAPENTIN
     Indication: SEIZURE
     Route: 065
  11. CELLCEPT [Suspect]
     Active Substance: MYCOPHENOLATE MOFETIL\MYCOPHENOLATE MOFETIL HYDROCHLORIDE
     Indication: SEIZURE
     Route: 065
  12. LAMICTAL [Suspect]
     Active Substance: LAMOTRIGINE
     Indication: SEIZURE
     Dosage: OVER THE LAST TWO YEARS
     Route: 065

REACTIONS (3)
  - Seizure [Unknown]
  - Drug ineffective [Unknown]
  - Amnesia [Unknown]
